FAERS Safety Report 4618238-7 (Version None)
Quarter: 2005Q1

REPORT INFORMATION
  Report Type: 
  Country: None (occurrence: None)
  Receive Date: 20050324
  Receipt Date: 20050318
  Transmission Date: 20050727
  Serious: Yes (Death, Hospitalization)
  Sender: FDA-Public Use
  Company Number: FR-ABBOTT-05P-056-0294551-00

PATIENT
  Age: 54 Year
  Sex: Female
  Weight: 91 kg

DRUGS (3)
  1. LIPANTHYL [Suspect]
     Indication: LIPID METABOLISM DISORDER
     Route: 048
     Dates: end: 20050226
  2. ABILIFY [Concomitant]
     Indication: DRUG USE FOR UNKNOWN INDICATION
     Dates: start: 20050209, end: 20050226
  3. RISPERIDONE [Concomitant]
     Indication: DRUG USE FOR UNKNOWN INDICATION
     Dates: start: 20020916, end: 20050209

REACTIONS (8)
  - BLOOD CREATINE PHOSPHOKINASE INCREASED [None]
  - CARDIO-RESPIRATORY ARREST [None]
  - DEPRESSION [None]
  - ELECTROCARDIOGRAM ST SEGMENT ELEVATION [None]
  - FALL [None]
  - FEELING ABNORMAL [None]
  - HYPERKALAEMIA [None]
  - PSYCHOMOTOR HYPERACTIVITY [None]
